FAERS Safety Report 8538467-X (Version None)
Quarter: 2012Q3

REPORT INFORMATION
  Report Type: 
  Country: None (occurrence: None)
  Receive Date: 20120718
  Receipt Date: 20120718
  Transmission Date: 20120928
  Serious: Yes (Other)
  Sender: FDA-Public Use
  Company Number: None

PATIENT
  Age: 80 Year
  Sex: Female
  Weight: 81.6475 kg

DRUGS (9)
  1. CYMBALTA [Suspect]
     Indication: NEUROPATHY PERIPHERAL
     Dosage: 1 CAP DAILY
     Dates: start: 20120210
  2. CYMBALTA [Suspect]
     Indication: BACK PAIN
     Dosage: 1 CAP DAILY
     Dates: start: 20120210
  3. CYMBALTA [Suspect]
     Indication: FIBROMYALGIA
     Dosage: 1 CAP DAILY
     Dates: start: 20120210
  4. CYMBALTA [Suspect]
     Indication: NEUROPATHY PERIPHERAL
     Dosage: 1 CAP DAILY
     Dates: start: 20120402
  5. CYMBALTA [Suspect]
     Indication: BACK PAIN
     Dosage: 1 CAP DAILY
     Dates: start: 20120402
  6. CYMBALTA [Suspect]
     Indication: FIBROMYALGIA
     Dosage: 1 CAP DAILY
     Dates: start: 20120402
  7. CYMBALTA [Suspect]
     Indication: NEUROPATHY PERIPHERAL
     Dosage: 1 CAP DAILY
     Dates: start: 20120427
  8. CYMBALTA [Suspect]
     Indication: BACK PAIN
     Dosage: 1 CAP DAILY
     Dates: start: 20120427
  9. CYMBALTA [Suspect]
     Indication: FIBROMYALGIA
     Dosage: 1 CAP DAILY
     Dates: start: 20120427

REACTIONS (8)
  - HEART RATE INCREASED [None]
  - TREMOR [None]
  - FEELING ABNORMAL [None]
  - BLOOD PRESSURE INCREASED [None]
  - INSOMNIA [None]
  - TOXICITY TO VARIOUS AGENTS [None]
  - MALAISE [None]
  - ANXIETY [None]
